FAERS Safety Report 7818051-3 (Version None)
Quarter: 2011Q4

REPORT INFORMATION
  Report Type: 
  Country: None (occurrence: None)
  Receive Date: 20111017
  Receipt Date: 20080924
  Transmission Date: 20120403
  Serious: Yes (Life-Threatening)
  Sender: FDA-Public Use
  Company Number: CO-B.I. PHARMACEUTICALS,INC./RIDGEFIELD-2008-BP-14792CL

PATIENT
  Age: 54 Year
  Sex: Female
  Weight: 64 kg

DRUGS (4)
  1. ASPIRINETA [Concomitant]
     Indication: ANGINA PECTORIS
     Dosage: 100 MG DAILY
     Route: 048
     Dates: start: 20050101
  2. LOVASTATIN [Concomitant]
     Dosage: 20 MG DAILY
     Route: 048
     Dates: start: 20080501
  3. MOBIC [Suspect]
     Indication: ANALGESIC THERAPY
     Dosage: 1 AMM DAILY
     Route: 030
     Dates: start: 20080922, end: 20080922
  4. METOPROLOL TARTRATE [Concomitant]
     Indication: HYPERTENSION
     Dosage: 50 MG DAILY
     Route: 048
     Dates: start: 20050101

REACTIONS (3)
  - PARAESTHESIA [None]
  - DIZZINESS [None]
  - HYPOTENSION [None]
